FAERS Safety Report 5075095-5 (Version None)
Quarter: 2006Q3

REPORT INFORMATION
  Report Type: 
  Country: None (occurrence: None)
  Receive Date: 20060803
  Receipt Date: 20060803
  Transmission Date: 20061208
  Serious: Yes (Hospitalization)
  Sender: FDA-Public Use
  Company Number: None

PATIENT
  Age: 45 Year
  Sex: Female
  Weight: 124 kg

DRUGS (2)
  1. MAXIPIME [Suspect]
     Dosage: 2 GRAMS  Q8H   IV DRIP
     Route: 041
  2. LEVAQUIN [Suspect]
     Dosage: 500MG  Q24H   IV DRIP
     Route: 041

REACTIONS (1)
  - CLOSTRIDIUM DIFFICILE COLITIS [None]
